FAERS Safety Report 4929276-9 (Version None)
Quarter: 2006Q1

REPORT INFORMATION
  Report Type: 
  Country: None (occurrence: None)
  Receive Date: 20060127
  Receipt Date: 20050510
  Transmission Date: 20060701
  Serious: Yes (Life-Threatening, Hospitalization, Disabling, Other)
  Sender: FDA-Public Use
  Company Number: 05-05-0835

PATIENT
  Age: 77 Year
  Sex: Female
  Weight: 79.8331 kg

DRUGS (8)
  1. VERAPAMIL HYDROCHLORIDE [Suspect]
     Indication: ATRIAL FIBRILLATION
     Dosage: 180 MG QD, ORAL
     Route: 048
     Dates: start: 20050325, end: 20050325
  2. LASIX [Concomitant]
  3. GLUCOTROL [Concomitant]
  4. ATENOLOL [Concomitant]
  5. K-DUR 10 [Concomitant]
  6. SYNTHROID [Concomitant]
  7. ACETYLSALICYLIC ACID SRT [Concomitant]
  8. COUMADIN [Concomitant]

REACTIONS (4)
  - BRADYCARDIA [None]
  - CARDIAC ARREST [None]
  - HYPOTENSION [None]
  - RENAL FAILURE [None]
